FAERS Safety Report 9917858 (Version 1)
Quarter: 2014Q1

REPORT INFORMATION
  Report Type: Spontaneous
  Country: FR (occurrence: FR)
  Receive Date: 20140221
  Receipt Date: 20140221
  Transmission Date: 20141002
  Serious: Yes (Other)
  Sender: FDA-Public Use
  Company Number: FR-GLAXOSMITHKLINE-B0968922A

PATIENT
  Age: 66 Year
  Sex: Female

DRUGS (11)
  1. SERETIDE [Suspect]
     Indication: PRODUCT USED FOR UNKNOWN INDICATION
     Route: 065
  2. RIFAMPICINE [Suspect]
     Indication: PRODUCT USED FOR UNKNOWN INDICATION
     Dosage: 600MG TWICE PER DAY
     Route: 048
     Dates: start: 20140109, end: 20140114
  3. FLAGYL [Suspect]
     Indication: PRODUCT USED FOR UNKNOWN INDICATION
     Dosage: 500MG THREE TIMES PER DAY
     Route: 048
     Dates: start: 20140109, end: 20140115
  4. TAVANIC [Suspect]
     Indication: PRODUCT USED FOR UNKNOWN INDICATION
     Dosage: 500MG UNKNOWN
     Route: 048
     Dates: start: 20140109, end: 20140115
  5. LASILIX [Suspect]
     Indication: PRODUCT USED FOR UNKNOWN INDICATION
     Route: 065
  6. KARDEGIC [Concomitant]
     Route: 065
  7. UMULINE [Concomitant]
     Route: 065
  8. CARDENSIEL [Concomitant]
     Route: 065
  9. INEXIUM [Concomitant]
     Route: 065
  10. TAHOR [Concomitant]
     Route: 065
  11. TAREG [Concomitant]
     Route: 065

REACTIONS (1)
  - Hepatitis [Recovering/Resolving]
